FAERS Safety Report 23232610 (Version 1)
Quarter: 2023Q4

REPORT INFORMATION
  Report Type: Spontaneous
  Country: TH (occurrence: None)
  Receive Date: 20231128
  Receipt Date: 20231128
  Transmission Date: 20240110
  Serious: Yes (Other)
  Sender: FDA-Public Use
  Company Number: TH-ROCHE-3461097

PATIENT
  Age: 72 Year
  Sex: Male
  Weight: 69.9 kg

DRUGS (7)
  1. ATEZOLIZUMAB [Suspect]
     Active Substance: ATEZOLIZUMAB
     Indication: Hepatocellular carcinoma
     Route: 041
  2. BEVACIZUMAB [Suspect]
     Active Substance: BEVACIZUMAB
     Indication: Hepatocellular carcinoma
     Dosage: 1000 MG
     Route: 042
  3. METOPROLOL [Concomitant]
     Active Substance: METOPROLOL
  4. TELMISARTAN [Concomitant]
     Active Substance: TELMISARTAN
  5. DUTASTERIDE [Concomitant]
     Active Substance: DUTASTERIDE
  6. ROSUVASTATIN [Concomitant]
     Active Substance: ROSUVASTATIN
  7. TAMLOSIN [Concomitant]

REACTIONS (19)
  - Cardiac failure congestive [Unknown]
  - Haemorrhage [Unknown]
  - Diarrhoea [Unknown]
  - Decreased appetite [Unknown]
  - Pyrexia [Unknown]
  - Alanine aminotransferase increased [Unknown]
  - Proteinuria [Unknown]
  - Gastrointestinal perforation [Unknown]
  - Fistula [Unknown]
  - Abscess [Unknown]
  - Embolism venous [Unknown]
  - Embolism arterial [Unknown]
  - Palmar-plantar erythrodysaesthesia syndrome [Unknown]
  - Abdominal pain [Unknown]
  - Alopecia [Unknown]
  - Asthenia [Unknown]
  - Infusion related reaction [Unknown]
  - Impaired healing [Unknown]
  - Rash pruritic [Unknown]
